FAERS Safety Report 4842258-0 (Version None)
Quarter: 2005Q4

REPORT INFORMATION
  Report Type: 
  Country: None (occurrence: None)
  Receive Date: 20051125
  Receipt Date: 20051114
  Transmission Date: 20060501
  Serious: Yes (Hospitalization, Other)
  Sender: FDA-Public Use
  Company Number: 2005156076

PATIENT
  Age: 77 Year
  Sex: Female
  Weight: 55.3388 kg

DRUGS (6)
  1. NORVASC [Suspect]
     Indication: BLOOD PRESSURE
     Dosage: 5 MG (5 MG, 1 IN 1 D), ORAL
     Route: 048
  2. RISPERDAL [Suspect]
     Indication: CONFUSIONAL STATE
     Dosage: (1 IN 1 D), INTRAVENOUS
     Route: 042
     Dates: start: 20050519, end: 20050601
  3. BENAZEPRIL HCL [Concomitant]
  4. TOPROL-XL [Concomitant]
  5. PRAVACHOL [Concomitant]
  6. SYNTHROID [Concomitant]

REACTIONS (5)
  - AMNESIA [None]
  - CONFUSIONAL STATE [None]
  - FALL [None]
  - HALLUCINATION [None]
  - LOSS OF CONSCIOUSNESS [None]
